FAERS Safety Report 19251764 (Version 3)
Quarter: 2021Q2

REPORT INFORMATION
  Report Type: Spontaneous
  Country: FR (occurrence: FR)
  Receive Date: 20210512
  Receipt Date: 20210519
  Transmission Date: 20210717
  Serious: Yes (Hospitalization, Other)
  Sender: FDA-Public Use
  Company Number: FR-GILEAD-2021-0530144

PATIENT
  Age: 69 Year
  Sex: Male

DRUGS (2)
  1. GENVOYA [Suspect]
     Active Substance: COBICISTAT\ELVITEGRAVIR\EMTRICITABINE\TENOFOVIR ALAFENAMIDE FUMARATE
     Indication: HIV INFECTION
     Dosage: UNK
     Route: 065
  2. GENVOYA [Suspect]
     Active Substance: COBICISTAT\ELVITEGRAVIR\EMTRICITABINE\TENOFOVIR ALAFENAMIDE FUMARATE
     Dosage: UNK
     Route: 065
     Dates: start: 20210319

REACTIONS (9)
  - Epilepsy [Unknown]
  - Behaviour disorder [Unknown]
  - General physical health deterioration [Unknown]
  - Neutropenia [Recovered/Resolved]
  - Gait disturbance [Unknown]
  - Psychotic disorder [Unknown]
  - COVID-19 [Unknown]
  - Psychomotor retardation [Unknown]
  - Lung disorder [Unknown]

NARRATIVE: CASE EVENT DATE: 20210411
